FAERS Safety Report 7015615-4 (Version None)
Quarter: 2010Q3

REPORT INFORMATION
  Report Type: 
  Country: None (occurrence: None)
  Receive Date: 20100927
  Receipt Date: 20100920
  Transmission Date: 20110219
  Serious: Yes (Hospitalization, Other)
  Sender: FDA-Public Use
  Company Number: US-MERCK-1009USA04211

PATIENT
  Age: 64 Year
  Sex: Female

DRUGS (1)
  1. JANUMET [Suspect]
     Indication: DIABETES MELLITUS
     Route: 048

REACTIONS (3)
  - ADVERSE EVENT [None]
  - HYPERTENSION [None]
  - PANCREATIC CYST [None]
